FAERS Safety Report 10618924 (Version 4)
Quarter: 2014Q4

REPORT INFORMATION
  Report Type: Spontaneous
  Country: ES (occurrence: ES)
  Receive Date: 20141202
  Receipt Date: 20141229
  Transmission Date: 20150529
  Serious: Yes (Other)
  Sender: FDA-Public Use
  Company Number: ES-THROMBOGENICS NV-SPO-2014-1450

PATIENT
  Age: 73 Year
  Sex: Female

DRUGS (2)
  1. VIGAMOX [Concomitant]
     Active Substance: MOXIFLOXACIN HYDROCHLORIDE
     Dosage: 1 DROP, EVERY 8 HOURS
     Dates: start: 20141114, end: 20141119
  2. JETREA [Suspect]
     Active Substance: OCRIPLASMIN
     Indication: VITREOUS ADHESIONS
     Dosage: 0.125 MG, ONE TIME DOSE
     Route: 031
     Dates: start: 20141117, end: 20141117

REACTIONS (10)
  - Macular hole [Recovered/Resolved]
  - Intraocular pressure decreased [Recovered/Resolved]
  - Vision blurred [Unknown]
  - Visual acuity reduced [Recovered/Resolved]
  - Photophobia [Unknown]
  - Hypotony of eye [Recovered/Resolved]
  - Ocular hyperaemia [Unknown]
  - Iridocyclitis [Recovered/Resolved]
  - Macular cyst [Unknown]
  - Eye pain [Recovered/Resolved]

NARRATIVE: CASE EVENT DATE: 20141117
